FAERS Safety Report 7793771-8 (Version None)
Quarter: 2011Q4

REPORT INFORMATION
  Report Type: 
  Country: None (occurrence: None)
  Receive Date: 20111003
  Receipt Date: 20110920
  Transmission Date: 20120403
  Serious: Yes (Other)
  Sender: FDA-Public Use
  Company Number: GB-MYLANLABS-2011S1020324

PATIENT
  Age: 76 Year
  Sex: Female

DRUGS (6)
  1. HEPARIN [Concomitant]
  2. DACTINOMYCIN [Suspect]
     Indication: MALIGNANT MELANOMA STAGE III
     Route: 042
  3. DALTEPARIN SODIUM [Concomitant]
  4. PROTAMINE [Concomitant]
  5. MELPHALAN HYDROCHLORIDE [Suspect]
     Indication: MALIGNANT MELANOMA STAGE III
     Dosage: 7MG/L
     Route: 042
  6. ASPIRIN [Concomitant]

REACTIONS (3)
  - DRUG ADMINISTRATION ERROR [None]
  - URINARY TRACT INFECTION [None]
  - NEUTROPENIC SEPSIS [None]
